FAERS Safety Report 6306232-X (Version None)
Quarter: 2009Q3

REPORT INFORMATION
  Report Type: 
  Country: None (occurrence: None)
  Receive Date: 20090812
  Receipt Date: 20090731
  Transmission Date: 20100115
  Serious: Yes (Hospitalization)
  Sender: FDA-Public Use
  Company Number: CA-NOVOPROD-289585

PATIENT
  Sex: Male
  Weight: 120 kg

DRUGS (9)
  1. INSULIN DETEMIR 2.4 MOL/L [Suspect]
     Indication: TYPE 2 DIABETES MELLITUS
     Dosage: 10 U, QD
     Route: 058
     Dates: start: 20090424
  2. INSULIN DETEMIR 2.4 MOL/L [Suspect]
     Dosage: UNK, UNK
  3. CIPROFLOXACIN [Concomitant]
     Dosage: 1000 MG, UNK
     Dates: start: 20090708
  4. TYLENOL (CAPLET) [Concomitant]
     Dosage: UNK, PRN
  5. DIAMICRON MR [Concomitant]
     Dosage: 60 MG, UNK
     Dates: start: 20090424
  6. AVAPRO [Concomitant]
     Dosage: 150 MG, UNK
     Dates: start: 20010101
  7. METFORMIN [Concomitant]
  8. PANTOLOC                           /01263201/ [Concomitant]
     Dosage: 40 MG, QD
  9. CRESTOR [Concomitant]
     Dosage: 10 MG, UNK

REACTIONS (2)
  - MUSCULOSKELETAL PAIN [None]
  - URINARY TRACT INFECTION [None]
